FAERS Safety Report 10362013 (Version 2)
Quarter: 2014Q3

REPORT INFORMATION
  Report Type: Spontaneous
  Country: US (occurrence: US)
  Receive Date: 20140805
  Receipt Date: 20140813
  Transmission Date: 20150326
  Serious: No
  Sender: FDA-Public Use
  Company Number: US-AMGEN INC.-USASP2014059117

PATIENT
  Age: 63 Year
  Sex: Female

DRUGS (1)
  1. ENBREL [Suspect]
     Active Substance: ETANERCEPT
     Indication: PSORIASIS
     Dosage: 50 MG, QWK
     Route: 065
     Dates: start: 20130613

REACTIONS (5)
  - Cough [Not Recovered/Not Resolved]
  - Dysgeusia [Not Recovered/Not Resolved]
  - Nasopharyngitis [Not Recovered/Not Resolved]
  - Upper respiratory tract infection [Unknown]
  - Hearing impaired [Not Recovered/Not Resolved]

NARRATIVE: CASE EVENT DATE: 20140723
